FAERS Safety Report 11341571 (Version 3)
Quarter: 2015Q3

REPORT INFORMATION
  Report Type: Report from Study
  Country: DE (occurrence: DE)
  Receive Date: 20150805
  Receipt Date: 20150812
  Transmission Date: 20151125
  Serious: Yes (Death, Life-Threatening, Hospitalization, Other)
  Sender: FDA-Public Use
  Company Number: PHHY2015DE041844

PATIENT
  Sex: Female
  Weight: 53 kg

DRUGS (2)
  1. EXEMESTANE. [Concomitant]
     Active Substance: EXEMESTANE
     Indication: BREAST CANCER METASTATIC
     Dosage: 25 MG, QD
     Route: 048
     Dates: start: 20150325, end: 20150722
  2. AFINITOR [Suspect]
     Active Substance: EVEROLIMUS
     Indication: BREAST CANCER METASTATIC
     Dosage: 5 MG, QD
     Route: 048
     Dates: start: 20150325, end: 20150722

REACTIONS (14)
  - Malignant pleural effusion [Fatal]
  - Malignant neoplasm progression [Fatal]
  - Eastern Cooperative Oncology Group performance status worsened [Not Recovered/Not Resolved]
  - General physical health deterioration [Fatal]
  - Metastases to pleura [Fatal]
  - Cardiopulmonary failure [Fatal]
  - Dyspnoea [Fatal]
  - Metastases to peritoneum [Not Recovered/Not Resolved]
  - Dyspnoea [Fatal]
  - Weight decreased [Unknown]
  - Ascites [Not Recovered/Not Resolved]
  - Terminal state [Unknown]
  - Flank pain [Recovering/Resolving]
  - Back pain [Recovering/Resolving]

NARRATIVE: CASE EVENT DATE: 20150327
